FAERS Safety Report 5924393-9 (Version None)
Quarter: 2008Q4

REPORT INFORMATION
  Report Type: 
  Country: None (occurrence: None)
  Receive Date: 20081020
  Receipt Date: 20081017
  Transmission Date: 20090506
  Serious: Yes (Life-Threatening, Hospitalization)
  Sender: FDA-Public Use
  Company Number: BR-ASTRAZENECA-2008UW23060

PATIENT
  Age: 72 Year
  Sex: Male
  Weight: 72 kg

DRUGS (4)
  1. SELOZOK [Suspect]
     Indication: HYPERTENSION
     Dosage: 25 MG IN MORNING AND 12.5 MG AT NIGHT
     Route: 048
     Dates: start: 20080201
  2. SELOZOK [Suspect]
     Indication: CARDIAC DISORDER
     Dosage: 25 MG IN MORNING AND 12.5 MG AT NIGHT
     Route: 048
     Dates: start: 20080201
  3. SIMVASTATIN [Concomitant]
     Indication: HYPERCHOLESTEROLAEMIA
     Dosage: DAILY
     Route: 048
  4. METFORMIN HYDROCHLORIDE [Concomitant]
     Indication: BLOOD GLUCOSE INCREASED
     Dosage: DAILY
     Route: 048

REACTIONS (3)
  - ARTERIAL OCCLUSIVE DISEASE [None]
  - HEART RATE INCREASED [None]
  - WEIGHT DECREASED [None]
